FAERS Safety Report 23147961 (Version 2)
Quarter: 2023Q4

REPORT INFORMATION
  Report Type: Spontaneous
  Country: US (occurrence: US)
  Receive Date: 20231106
  Receipt Date: 20231108
  Transmission Date: 20240109
  Serious: No
  Sender: FDA-Public Use
  Company Number: US-MYLANLABS-2023M1116093

PATIENT
  Age: 62 Year
  Sex: Female
  Weight: 87.09 kg

DRUGS (2)
  1. ESTRADIOL TRANSDERMAL SYSTEM [Suspect]
     Active Substance: ESTRADIOL
     Indication: Product used for unknown indication
     Dosage: 0.05 MILLIGRAM, QD
     Route: 062
     Dates: start: 2022
  2. ESTRADIOL TRANSDERMAL SYSTEM [Suspect]
     Active Substance: ESTRADIOL
     Dosage: 0.05 MILLIGRAM, QD
     Route: 062
     Dates: start: 202310

REACTIONS (3)
  - Application site pain [Unknown]
  - Product adhesion issue [Unknown]
  - Product tampering [Unknown]

NARRATIVE: CASE EVENT DATE: 20231001
